FAERS Safety Report 15817933 (Version 1)
Quarter: 2019Q1

REPORT INFORMATION
  Report Type: Spontaneous
  Country: US (occurrence: US)
  Receive Date: 20190113
  Receipt Date: 20190113
  Transmission Date: 20190417
  Serious: No
  Sender: FDA-Public Use
  Company Number: US-COOPERSURGICAL, INC.-US-2018CPS018405

PATIENT
  Age: 23 Year
  Sex: Female
  Weight: 50 kg

DRUGS (1)
  1. PARAGARD T 380A [Suspect]
     Active Substance: COPPER
     Indication: CONTRACEPTION
     Dates: start: 201705, end: 20171002

REACTIONS (7)
  - Depression [Not Recovered/Not Resolved]
  - Menorrhagia [Recovered/Resolved]
  - Malaise [Not Recovered/Not Resolved]
  - Vaginal haemorrhage [Recovered/Resolved]
  - Panic attack [Not Recovered/Not Resolved]
  - Anxiety [Not Recovered/Not Resolved]
  - Blood copper increased [Not Recovered/Not Resolved]

NARRATIVE: CASE EVENT DATE: 201707
